FAERS Safety Report 6613321-9 (Version None)
Quarter: 2010Q1

REPORT INFORMATION
  Report Type: 
  Country: None (occurrence: None)
  Receive Date: 20100304
  Receipt Date: 20100224
  Transmission Date: 20100710
  Serious: Yes (Other)
  Sender: FDA-Public Use
  Company Number: PHEH2009US17867

PATIENT
  Sex: Female

DRUGS (1)
  1. EXJADE [Suspect]
     Dosage: 1250 MG DAILY
     Route: 048

REACTIONS (5)
  - DIARRHOEA [None]
  - HEARING IMPAIRED [None]
  - NAUSEA [None]
  - SURGERY [None]
  - VISION BLURRED [None]
